FAERS Safety Report 25820603 (Version 1)
Quarter: 2025Q3

REPORT INFORMATION
  Report Type: Report from Study
  Country: CA (occurrence: CA)
  Receive Date: 20250919
  Receipt Date: 20250919
  Transmission Date: 20251021
  Serious: Yes (Other)
  Sender: ABBVIE
  Company Number: CA-ABBVIE-6458988

PATIENT
  Sex: Female

DRUGS (1)
  1. HUMIRA [Suspect]
     Active Substance: ADALIMUMAB
     Indication: Psoriasis
     Route: 058

REACTIONS (7)
  - Ovarian cyst ruptured [Unknown]
  - Abdominal pain upper [Unknown]
  - Urinary tract infection [Unknown]
  - Appendicitis [Unknown]
  - Pollakiuria [Unknown]
  - Back pain [Unknown]
  - Nausea [Unknown]
